FAERS Safety Report 21409003 (Version 1)
Quarter: 2022Q4

REPORT INFORMATION
  Report Type: Spontaneous
  Country: US (occurrence: US)
  Receive Date: 20221004
  Receipt Date: 20221004
  Transmission Date: 20230112
  Serious: No
  Sender: FDA-Public Use
  Company Number: US-SA-SAC20220930001331

PATIENT

DRUGS (1)
  1. RASBURICASE [Suspect]
     Active Substance: RASBURICASE
     Dosage: UNK
     Route: 065

REACTIONS (1)
  - Wrong product administered [Unknown]
